FAERS Safety Report 16022923 (Version 1)
Quarter: 2019Q1

REPORT INFORMATION
  Report Type: Spontaneous
  Country: US (occurrence: US)
  Receive Date: 20190301
  Receipt Date: 20190301
  Transmission Date: 20190418
  Serious: No
  Sender: FDA-Public Use
  Company Number: US-VERTEX PHARMACEUTICALS-2019-001712

PATIENT
  Sex: Female

DRUGS (1)
  1. SYMDEKO [Suspect]
     Active Substance: IVACAFTOR\TEZACAFTOR
     Indication: CYSTIC FIBROSIS
     Dosage: 1 TEZACAFTOR 100MG/IVACAFTOR 150MG AM/ 1 IVACAFTOR 150MG PM, WITH FAT CONTAINING FOODS
     Route: 048
     Dates: start: 201805

REACTIONS (1)
  - Chest discomfort [Unknown]
